FAERS Safety Report 26039528 (Version 1)
Quarter: 2025Q4

REPORT INFORMATION
  Report Type: Spontaneous
  Country: EU (occurrence: EU)
  Receive Date: 20251113
  Receipt Date: 20251113
  Transmission Date: 20260118
  Serious: Yes (Other)
  Sender: CSL BEHRING
  Company Number: EU-TAKEDA-2025TUS093332

PATIENT
  Age: 34 Year
  Sex: Male

DRUGS (12)
  1. HUMAN IMMUNOGLOBULIN G [Suspect]
     Active Substance: HUMAN IMMUNOGLOBULIN G
     Indication: Product used for unknown indication
     Dosage: UNK
     Route: 065
     Dates: start: 200505, end: 202404
  2. HYQVIA [Suspect]
     Active Substance: HUMAN IMMUNOGLOBULIN G\HYALURONIDASE (HUMAN RECOMBINANT)
     Indication: Product used for unknown indication
     Dosage: 30 GRAM/ 300 MILLILTER
     Route: 058
  3. RITUXIMAB [Suspect]
     Active Substance: RITUXIMAB
     Indication: Product used for unknown indication
     Dosage: 700 MILLIGRAM
     Route: 042
  4. PREDNISONE [Suspect]
     Active Substance: PREDNISONE
     Indication: Product used for unknown indication
     Dosage: UNK
     Route: 065
     Dates: start: 200404, end: 2011
  5. CYCLOPHOSPHAMIDE [Suspect]
     Active Substance: CYCLOPHOSPHAMIDE
     Indication: Product used for unknown indication
     Dosage: 1.2 GRAM
     Route: 042
  6. SOLU-MEDROL [Suspect]
     Active Substance: METHYLPREDNISOLONE SODIUM SUCCINATE
     Indication: Product used for unknown indication
     Dosage: 1.2 GRAM
     Route: 065
  7. CYCLOSPORINE [Suspect]
     Active Substance: CYCLOSPORINE
     Indication: Product used for unknown indication
     Dosage: UNK, QD
     Route: 065
  8. IMURAN [Suspect]
     Active Substance: AZATHIOPRINE
     Indication: Product used for unknown indication
     Dosage: 150 MILLIGRAM, QD
     Route: 065
     Dates: start: 200505, end: 200511
  9. CARMUSTINE [Concomitant]
     Active Substance: CARMUSTINE
     Dosage: UNK
     Route: 065
     Dates: start: 201206
  10. ETOPOSIDE [Concomitant]
     Active Substance: ETOPOSIDE
     Dosage: UNK
     Route: 065
     Dates: start: 201206
  11. CYTARABINE [Concomitant]
     Active Substance: CYTARABINE
     Dosage: UNK
     Route: 065
     Dates: start: 201206
  12. MELPHALAN [Concomitant]
     Active Substance: MELPHALAN
     Dosage: UNK
     Route: 065
     Dates: start: 201206

REACTIONS (15)
  - Quadriparesis [Unknown]
  - Bronchitis [Unknown]
  - Sensory processing disorder [Not Recovered/Not Resolved]
  - Fine motor skill dysfunction [Unknown]
  - Areflexia [Unknown]
  - Peripheral sensory neuropathy [Unknown]
  - Gait disturbance [Recovering/Resolving]
  - Hyporeflexia [Unknown]
  - Hypoaesthesia [Recovering/Resolving]
  - Ataxia [Unknown]
  - Walking aid user [Unknown]
  - Respiratory tract infection [Unknown]
  - Paraesthesia [Unknown]
  - Monoclonal immunoglobulin present [Unknown]
  - Muscular weakness [Unknown]

NARRATIVE: CASE EVENT DATE: 20050501
